FAERS Safety Report 5036073-5 (Version None)
Quarter: 2006Q2

REPORT INFORMATION
  Report Type: 
  Country: None (occurrence: None)
  Receive Date: 20060530
  Receipt Date: 20060425
  Transmission Date: 20061013
  Serious: No
  Sender: FDA-Public Use
  Company Number: MPS1-10525

PATIENT
  Age: 16 Month
  Sex: Female
  Weight: 11.3 kg

DRUGS (2)
  1. ALDURAZYME [Suspect]
     Indication: MUCOPOLYSACCHARIDOSIS I
     Dosage: 0.58 MG/KG QWK IV
     Route: 042
     Dates: start: 20060403
  2. BENADRYL [Concomitant]

REACTIONS (2)
  - CHOKING [None]
  - RASH [None]
